FAERS Safety Report 11205214 (Version 3)
Quarter: 2015Q3

REPORT INFORMATION
  Report Type: Spontaneous
  Country: DE (occurrence: DE)
  Receive Date: 20150622
  Receipt Date: 20150724
  Transmission Date: 20151125
  Serious: Yes (Hospitalization)
  Sender: FDA-Public Use
  Company Number: DE-JNJFOC-20150615206

PATIENT
  Age: 85 Year
  Sex: Female
  Weight: 52 kg

DRUGS (17)
  1. FURORESE [Concomitant]
     Active Substance: FUROSEMIDE
     Dosage: 20 AT 1-1-0
     Route: 065
  2. VIGANTOLETTEN [Concomitant]
     Active Substance: CHOLECALCIFEROL
     Dosage: 1000 1-0-0
     Route: 065
  3. FURORESE [Concomitant]
     Active Substance: FUROSEMIDE
     Dosage: 20 AT 1-0-0
     Route: 065
  4. XARELTO [Suspect]
     Active Substance: RIVAROXABAN
     Indication: DEEP VEIN THROMBOSIS
     Route: 048
     Dates: start: 20140919, end: 20150402
  5. DELIX [Concomitant]
     Active Substance: RAMIPRIL
     Dosage: 2.5 1-0-0
     Route: 065
  6. CALCIUM [Concomitant]
     Active Substance: CALCIUM
     Dosage: 1-0-0
     Route: 065
  7. CLEXANE [Concomitant]
     Active Substance: ENOXAPARIN SODIUM
     Indication: ANTICOAGULANT THERAPY
     Dosage: 0.4 AT 1-0-0 (ONCE DAILY IN THE MORNING AND FOR THE TIME BEING)
     Route: 065
  8. NOVALGIN [Concomitant]
     Active Substance: METAMIZOLE SODIUM
     Dosage: 500 1-00
     Route: 065
  9. FOSAMAX [Concomitant]
     Active Substance: ALENDRONATE SODIUM
     Route: 065
  10. PIPAMPERONE [Concomitant]
     Active Substance: PIPAMPERONE
     Dosage: 40 AT 1-0-1
     Route: 065
  11. RANITIC [Concomitant]
     Active Substance: RANITIDINE HYDROCHLORIDE
     Dosage: 0-0-1
     Route: 065
  12. CLEXANE [Concomitant]
     Active Substance: ENOXAPARIN SODIUM
     Indication: ANTICOAGULANT THERAPY
     Dosage: -0-1 (UP TO AND INCLUDING 30-APR-2015)
     Route: 065
  13. XARELTO [Suspect]
     Active Substance: RIVAROXABAN
     Indication: EMBOLISM VENOUS
     Route: 048
     Dates: start: 20140919, end: 20150402
  14. PANTOPRAZOLE [Concomitant]
     Active Substance: PANTOPRAZOLE SODIUM
     Dosage: 40 1-0-0
     Route: 065
  15. AQUAPHOR [Concomitant]
     Active Substance: PETROLATUM
     Dosage: 1-0-0
     Route: 065
  16. PRADAXA [Concomitant]
     Active Substance: DABIGATRAN ETEXILATE MESYLATE
     Indication: ANTICOAGULANT THERAPY
     Route: 065
     Dates: start: 20150430
  17. PANTOPRAZOLE [Concomitant]
     Active Substance: PANTOPRAZOLE SODIUM
     Dosage: 40 1-1-1
     Route: 065

REACTIONS (4)
  - Blood bilirubin increased [Recovering/Resolving]
  - Gamma-glutamyltransferase increased [Recovering/Resolving]
  - Hepatic failure [Recovering/Resolving]
  - Jaundice [Recovering/Resolving]

NARRATIVE: CASE EVENT DATE: 201412
